FAERS Safety Report 20184626 (Version 2)
Quarter: 2021Q4

REPORT INFORMATION
  Report Type: Spontaneous
  Country: US (occurrence: US)
  Receive Date: 20211214
  Receipt Date: 20211214
  Transmission Date: 20220303
  Serious: No
  Sender: FDA-Public Use
  Company Number: US-NOVOPROD-858710

PATIENT
  Sex: Female

DRUGS (4)
  1. NOVOLIN N [Suspect]
     Active Substance: INSULIN HUMAN
     Indication: Product used for unknown indication
     Dosage: 65 IU, QD (40 UNITS MIXED WITH THE NOVOLIN R IN THE MORNING, 25 UNITS MIXED WITH NOVOLIN R IN THE EV
     Route: 058
     Dates: start: 1990
  2. NOVOLIN R [Suspect]
     Active Substance: INSULIN HUMAN
     Indication: Product used for unknown indication
     Dosage: 15 IU, BID (15 UNITS MIXED WITH NOVOLIN N IN THE MORNING, 15 UNITS MIXED WITH NOVOLIN N IN THE EVENI
     Route: 058
     Dates: start: 1990
  3. ELIQUIS [Suspect]
     Active Substance: APIXABAN
     Indication: Product used for unknown indication
     Dosage: UNK
     Route: 065
  4. COVID-19 VACCINE NOS [Suspect]
     Active Substance: COVID-19 VACCINE NOS
     Indication: Product used for unknown indication
     Dosage: UNK
     Route: 065

REACTIONS (4)
  - Extremity contracture [Unknown]
  - Adverse drug reaction [Unknown]
  - Blood glucose increased [Unknown]
  - Product use issue [Unknown]
